FAERS Safety Report 10812132 (Version 1)
Quarter: 2015Q1

REPORT INFORMATION
  Report Type: Spontaneous
  Country: US (occurrence: None)
  Receive Date: 20150213
  Receipt Date: 20150213
  Transmission Date: 20150721
  Serious: Yes (Hospitalization)
  Sender: FDA-Public Use
  Company Number: None

PATIENT
  Age: 62 Year
  Sex: Male

DRUGS (19)
  1. MESNA. [Concomitant]
     Active Substance: MESNA
  2. COMPAZINE [Concomitant]
     Active Substance: PROCHLORPERAZINE MALEATE
  3. FLOMAX [Concomitant]
     Active Substance: TAMSULOSIN HYDROCHLORIDE
  4. CETIRIZINE [Concomitant]
     Active Substance: CETIRIZINE HYDROCHLORIDE
  5. DEXAMETHASONE. [Concomitant]
     Active Substance: DEXAMETHASONE
  6. COREG [Concomitant]
     Active Substance: CARVEDILOL
  7. TRAZODONE [Concomitant]
     Active Substance: TRAZODONE HYDROCHLORIDE
  8. ALOXI [Concomitant]
     Active Substance: PALONOSETRON HYDROCHLORIDE
  9. NEULASTA [Concomitant]
     Active Substance: PEGFILGRASTIM
  10. FUROSEMIDE. [Concomitant]
     Active Substance: FUROSEMIDE
  11. ASPIRIN. [Concomitant]
     Active Substance: ASPIRIN
  12. OMEPRAZOLE. [Concomitant]
     Active Substance: OMEPRAZOLE
  13. EMEND [Concomitant]
     Active Substance: APREPITANT
  14. ENALAPRIL [Concomitant]
     Active Substance: ENALAPRIL
  15. FINASTERIDE. [Concomitant]
     Active Substance: FINASTERIDE
  16. IFOSFAMIDE. [Suspect]
     Active Substance: IFOSFAMIDE
     Indication: SARCOMA
     Dosage: 7 GRAMS, EVERY 3 WEEKS, INTRAVENOUS
     Route: 042
     Dates: start: 20141224
  17. SIMVASTATIN. [Concomitant]
     Active Substance: SIMVASTATIN
  18. ALEVE [Concomitant]
     Active Substance: NAPROXEN SODIUM
  19. ZOFRAN [Concomitant]
     Active Substance: ONDANSETRON HYDROCHLORIDE

REACTIONS (2)
  - Mental status changes [None]
  - No reaction on previous exposure to drug [None]

NARRATIVE: CASE EVENT DATE: 20141224
